FAERS Safety Report 7132273-9 (Version None)
Quarter: 2010Q4

REPORT INFORMATION
  Report Type: 
  Country: None (occurrence: None)
  Receive Date: 20101202
  Receipt Date: 20101119
  Transmission Date: 20110411
  Serious: Yes (Hospitalization, Other)
  Sender: FDA-Public Use
  Company Number: PHHY2010JP75238

PATIENT
  Age: 25 Year
  Sex: Male
  Weight: 26.6 kg

DRUGS (3)
  1. VOLTAREN [Suspect]
     Indication: PYREXIA
     Dosage: UNK
     Route: 048
     Dates: start: 19990101
  2. ANTIBIOTICS [Concomitant]
  3. CEFTRIAXONE [Concomitant]

REACTIONS (8)
  - ANURIA [None]
  - BLOOD PRESSURE DECREASED [None]
  - DEHYDRATION [None]
  - DIALYSIS [None]
  - PNEUMONIA [None]
  - POLYURIA [None]
  - RENAL FAILURE ACUTE [None]
  - SEPTIC SHOCK [None]
